FAERS Safety Report 13876125 (Version 1)
Quarter: 2017Q3

REPORT INFORMATION
  Report Type: Spontaneous
  Country: US (occurrence: US)
  Receive Date: 20170817
  Receipt Date: 20170817
  Transmission Date: 20171127
  Serious: No
  Sender: FDA-Public Use
  Company Number: US-PFIZER INC-2017353000

PATIENT
  Sex: Female

DRUGS (1)
  1. XELJANZ XR [Suspect]
     Active Substance: TOFACITINIB CITRATE
     Dosage: 11 MG, DAILY

REACTIONS (8)
  - Tenderness [Unknown]
  - Muscle spasms [Unknown]
  - Muscular weakness [Unknown]
  - Joint swelling [Unknown]
  - Intervertebral disc degeneration [Unknown]
  - Pre-existing condition improved [Unknown]
  - Neck pain [Unknown]
  - Arthralgia [Unknown]
